FAERS Safety Report 9682262 (Version 2)
Quarter: 2014Q1

REPORT INFORMATION
  Report Type: Report from Study
  Country: US (occurrence: US)
  Receive Date: 20131112
  Receipt Date: 20140113
  Transmission Date: 20141002
  Serious: Yes (Death)
  Sender: FDA-Public Use
  Company Number: US-ROCHE-1302626

PATIENT
  Age: 66 Year
  Sex: Female

DRUGS (1)
  1. CELLCEPT [Suspect]
     Indication: RENAL TRANSPLANT
     Route: 048

REACTIONS (4)
  - Cardio-respiratory arrest [Fatal]
  - Hypoxic-ischaemic encephalopathy [Fatal]
  - Cellulitis [Fatal]
  - Sepsis [Fatal]
